FAERS Safety Report 4303236-3 (Version None)
Quarter: 2004Q1

REPORT INFORMATION
  Report Type: 
  Country: None (occurrence: None)
  Receive Date: 20040223
  Receipt Date: 20040216
  Transmission Date: 20041129
  Serious: Yes (Other)
  Sender: FDA-Public Use
  Company Number: DE-JNJFOC-20040203682

PATIENT
  Age: 64 Year
  Sex: Female
  Weight: 51 kg

DRUGS (7)
  1. DURAGESIC [Suspect]
     Indication: CANCER PAIN
     Dosage: SEE IMAGE
     Route: 062
     Dates: start: 20031101
  2. DURAGESIC [Suspect]
     Indication: CANCER PAIN
     Dosage: SEE IMAGE
     Route: 062
     Dates: start: 20040101
  3. DURAGESIC [Suspect]
     Indication: CANCER PAIN
     Dosage: SEE IMAGE
     Route: 062
     Dates: start: 20040126
  4. NOVALGIN (DROPS) METAMIZOLE SODIUM [Concomitant]
  5. AMITRIPTYLINE HCL [Concomitant]
  6. NEURONTIN [Concomitant]
  7. CORTISON (CORTISONE) [Concomitant]

REACTIONS (11)
  - CREATININE RENAL CLEARANCE DECREASED [None]
  - FATIGUE [None]
  - GENERAL PHYSICAL HEALTH DETERIORATION [None]
  - METASTASES TO BONE [None]
  - METASTASES TO MENINGES [None]
  - METASTASES TO SPINE [None]
  - MIOSIS [None]
  - OVERDOSE [None]
  - PAIN IN EXTREMITY [None]
  - PLEURAL EFFUSION [None]
  - SOMNOLENCE [None]
